FAERS Safety Report 5431510-6 (Version None)
Quarter: 2007Q3

REPORT INFORMATION
  Report Type: 
  Country: None (occurrence: None)
  Receive Date: 20070830
  Receipt Date: 20070823
  Transmission Date: 20080115
  Serious: Yes (Hospitalization)
  Sender: FDA-Public Use
  Company Number: CA-JNJFOC-20070602811

PATIENT
  Sex: Female
  Weight: 56.25 kg

DRUGS (2)
  1. REMICADE [Suspect]
     Indication: RHEUMATOID ARTHRITIS
     Route: 042
  2. METHOTREXATE [Suspect]
     Indication: DRUG USE FOR UNKNOWN INDICATION
     Route: 048

REACTIONS (5)
  - DIARRHOEA [None]
  - INCORRECT DOSE ADMINISTERED [None]
  - MOUTH ULCERATION [None]
  - PANCYTOPENIA [None]
  - RASH [None]
